FAERS Safety Report 6391391-3 (Version None)
Quarter: 2009Q4

REPORT INFORMATION
  Report Type: 
  Country: None (occurrence: None)
  Receive Date: 20091007
  Receipt Date: 20090925
  Transmission Date: 20100525
  Serious: Yes (Other)
  Sender: FDA-Public Use
  Company Number: US-PFIZER INC-2005006633

PATIENT
  Sex: Female
  Weight: 82 kg

DRUGS (8)
  1. PROVERA [Suspect]
     Indication: HORMONE REPLACEMENT THERAPY
     Dosage: UNK
     Route: 048
     Dates: start: 19880101, end: 19960101
  2. PREMARIN [Suspect]
     Indication: HORMONE REPLACEMENT THERAPY
     Dosage: UNK
     Dates: start: 19880101, end: 19960101
  3. PREMPRO [Suspect]
     Indication: HORMONE REPLACEMENT THERAPY
     Dosage: 0.625/2.5MG
     Route: 065
     Dates: start: 19960101, end: 20020827
  4. LOTREL [Concomitant]
     Indication: BLOOD PRESSURE
     Dosage: 5/20MG
     Dates: start: 19970101
  5. SYNTHROID [Concomitant]
     Indication: THYROID DISORDER
     Dosage: 200 MG, 1X/DAY
     Dates: start: 19990101
  6. BISOPROLOL [Concomitant]
     Indication: BLOOD PRESSURE
     Dosage: UNK
     Dates: start: 19970101
  7. XALATAN [Concomitant]
     Dosage: UNK
     Dates: start: 20010101
  8. CELEBREX [Concomitant]
     Indication: ARTHRITIS
     Dosage: 200 MG, 1X/DAY
     Dates: start: 19970101, end: 20040101

REACTIONS (1)
  - BREAST CANCER FEMALE [None]
